FAERS Safety Report 12080994 (Version 7)
Quarter: 2016Q3

REPORT INFORMATION
  Report Type: Spontaneous
  Country: JP (occurrence: JP)
  Receive Date: 20160216
  Receipt Date: 20160707
  Transmission Date: 20161109
  Serious: Yes (Death)
  Sender: FDA-Public Use
  Company Number: JP-B.I. PHARMACEUTICALS,INC./RIDGEFIELD-2016-BI-09352NB

PATIENT
  Age: 75 Year
  Sex: Male
  Weight: 66.7 kg

DRUGS (1)
  1. ELIQUIS [Suspect]
     Active Substance: APIXABAN
     Indication: ATRIAL FIBRILLATION
     Route: 048
     Dates: start: 20140609, end: 20160212

REACTIONS (1)
  - Brain stem haemorrhage [Fatal]

NARRATIVE: CASE EVENT DATE: 20160213
